FAERS Safety Report 14785262 (Version 5)
Quarter: 2022Q4

REPORT INFORMATION
  Report Type: Spontaneous
  Country: US (occurrence: None)
  Receive Date: 20180421
  Receipt Date: 20221213
  Transmission Date: 20230112
  Serious: Yes (Other)
  Sender: FDA-Public Use
  Company Number: 2018SE48196

PATIENT
  Age: 24781 Day
  Sex: Male
  Weight: 91.2 kg

DRUGS (50)
  1. NEXIUM [Suspect]
     Active Substance: ESOMEPRAZOLE MAGNESIUM
     Route: 048
     Dates: start: 198909, end: 201712
  2. NEXIUM [Suspect]
     Active Substance: ESOMEPRAZOLE MAGNESIUM
     Route: 048
  3. NEXIUM 24HR [Suspect]
     Active Substance: ESOMEPRAZOLE MAGNESIUM
     Route: 048
     Dates: start: 198909, end: 201712
  4. NEXIUM 24HR [Suspect]
     Active Substance: ESOMEPRAZOLE MAGNESIUM
     Route: 048
  5. PRILOSEC [Suspect]
     Active Substance: OMEPRAZOLE MAGNESIUM
     Indication: Gastrooesophageal reflux disease
     Route: 048
  6. PRILOSEC [Suspect]
     Active Substance: OMEPRAZOLE MAGNESIUM
     Indication: Gastrooesophageal reflux disease
     Route: 048
     Dates: start: 20020101, end: 20160804
  7. PRILOSEC [Suspect]
     Active Substance: OMEPRAZOLE MAGNESIUM
     Indication: Gastrooesophageal reflux disease
     Route: 048
     Dates: start: 198909, end: 201712
  8. PRILOSEC OTC [Suspect]
     Active Substance: OMEPRAZOLE MAGNESIUM
     Route: 048
     Dates: start: 198909, end: 201712
  9. PRILOSEC OTC [Suspect]
     Active Substance: OMEPRAZOLE MAGNESIUM
     Route: 048
  10. DEXILANT [Suspect]
     Active Substance: DEXLANSOPRAZOLE
     Route: 065
     Dates: start: 198909, end: 201712
  11. PREVACID [Suspect]
     Active Substance: LANSOPRAZOLE
     Route: 065
     Dates: start: 198909, end: 201712
  12. PREVACID [Suspect]
     Active Substance: LANSOPRAZOLE
     Route: 065
  13. PREVACID 24 HR [Suspect]
     Active Substance: LANSOPRAZOLE
     Route: 065
     Dates: start: 198909, end: 201712
  14. PREVACID 24 HR [Suspect]
     Active Substance: LANSOPRAZOLE
     Route: 065
  15. PROTONIX [Suspect]
     Active Substance: PANTOPRAZOLE SODIUM
     Route: 065
     Dates: start: 198909, end: 201712
  16. LOSARTAN [Concomitant]
     Active Substance: LOSARTAN
  17. GABAPENTIN [Concomitant]
     Active Substance: GABAPENTIN
  18. ATORVASTATIN [Concomitant]
     Active Substance: ATORVASTATIN
  19. BUPIVACAINE HYDROCHLORIDE/LIDOCAINE HYDROCHLORIDE/KETOROLAC TROMETHAMI [Concomitant]
  20. HYDROCODONE [Concomitant]
     Active Substance: HYDROCODONE
  21. CYCLOBENZAPRINE [Concomitant]
     Active Substance: CYCLOBENZAPRINE
  22. ALLOPURINOL [Concomitant]
     Active Substance: ALLOPURINOL
  23. VITAMINS [Concomitant]
     Active Substance: VITAMINS
  24. ASPIRIN [Concomitant]
     Active Substance: ASPIRIN
  25. LISINOPRIL [Concomitant]
     Active Substance: LISINOPRIL
  26. TOPROL XL [Concomitant]
     Active Substance: METOPROLOL SUCCINATE
  27. IBUPROFEN [Concomitant]
     Active Substance: IBUPROFEN
  28. RANITIDINE [Concomitant]
     Active Substance: RANITIDINE
  29. PROMETHAZINE [Concomitant]
     Active Substance: PROMETHAZINE HYDROCHLORIDE
  30. OFLOXACIN [Concomitant]
     Active Substance: OFLOXACIN
  31. SULFAMETHY [Concomitant]
  32. POLYETHYLENE GLYCOL [Concomitant]
     Active Substance: POLYETHYLENE GLYCOL
  33. CALCIUM CARBONATE\ERGOCALCIFEROL\RETINOL [Concomitant]
     Active Substance: CALCIUM CARBONATE\ERGOCALCIFEROL\RETINOL
  34. LUMIGAN [Concomitant]
     Active Substance: BIMATOPROST
  35. TAMSULOSIN [Concomitant]
     Active Substance: TAMSULOSIN
  36. FOLIC ACID [Concomitant]
     Active Substance: FOLIC ACID
  37. FERROUS SULFATE [Concomitant]
     Active Substance: FERROUS SULFATE
  38. ACETAMINOPHEN [Concomitant]
     Active Substance: ACETAMINOPHEN
  39. CAPSAICIN [Concomitant]
     Active Substance: CAPSAICIN
  40. ONDANSETRON [Concomitant]
     Active Substance: ONDANSETRON
  41. DOCQLACE [Concomitant]
     Active Substance: DOCUSATE SODIUM
  42. AMMONIUM CHLORIDE\DEXTROMETHORPHAN\SODIUM CITRATE [Concomitant]
     Active Substance: AMMONIUM CHLORIDE\DEXTROMETHORPHAN\SODIUM CITRATE
  43. TUSSIONEX PENNKINETIC [Concomitant]
     Active Substance: CHLORPHENIRAMINE\HYDROCODONE
  44. DIOVAN [Concomitant]
     Active Substance: VALSARTAN
  45. MECLIZINE [Concomitant]
     Active Substance: MECLIZINE HYDROCHLORIDE
  46. VALACYCLOVIR [Concomitant]
     Active Substance: VALACYCLOVIR HYDROCHLORIDE
  47. FLUTICASONE [Concomitant]
     Active Substance: FLUTICASONE
  48. TOPIRAMATE [Concomitant]
     Active Substance: TOPIRAMATE
  49. COMBIGAN [Concomitant]
     Active Substance: BRIMONIDINE TARTRATE\TIMOLOL MALEATE
  50. BACLOFEN [Concomitant]
     Active Substance: BACLOFEN

REACTIONS (5)
  - Chronic kidney disease [Not Recovered/Not Resolved]
  - Renal injury [Unknown]
  - Acute kidney injury [Unknown]
  - Anaemia of chronic disease [Unknown]
  - Chronic kidney disease-mineral and bone disorder [Unknown]

NARRATIVE: CASE EVENT DATE: 20100202
